FAERS Safety Report 6115376-7 (Version None)
Quarter: 2009Q1

REPORT INFORMATION
  Report Type: 
  Country: None (occurrence: None)
  Receive Date: 20090313
  Receipt Date: 20090304
  Transmission Date: 20090719
  Serious: Yes (Hospitalization, Congenital Anomaly, Other)
  Sender: FDA-Public Use
  Company Number: PHHO2009AR01765

PATIENT

DRUGS (1)
  1. TASIGNA [Suspect]
     Route: 064

REACTIONS (6)
  - CARDIAC DISORDER [None]
  - CATHETER RELATED INFECTION [None]
  - DRUG EXPOSURE DURING PREGNANCY [None]
  - HEPATOMEGALY [None]
  - PULMONARY ARTERY BANDING [None]
  - TRANSPOSITION OF THE GREAT VESSELS [None]
